FAERS Safety Report 15893756 (Version 1)
Quarter: 2019Q1

REPORT INFORMATION
  Report Type: Spontaneous
  Country: FR (occurrence: FR)
  Receive Date: 20190131
  Receipt Date: 20190131
  Transmission Date: 20190417
  Serious: Yes (Congenital Anomaly)
  Sender: FDA-Public Use
  Company Number: FR-TEVA-2019-FR-1004017

PATIENT
  Age: 0 Day
  Sex: Male
  Weight: .88 kg

DRUGS (1)
  1. MODIODAL 100 MG, COMPRIM? [Suspect]
     Active Substance: MODAFINIL
     Indication: NARCOLEPSY
     Dosage: UNKNOWN DOSE
     Route: 064

REACTIONS (4)
  - Premature baby [Not Recovered/Not Resolved]
  - Maternal drugs affecting foetus [None]
  - Duodenal atresia [Not Recovered/Not Resolved]
  - Foetal exposure during pregnancy [Unknown]

NARRATIVE: CASE EVENT DATE: 20180512
